FAERS Safety Report 4334800-3 (Version None)
Quarter: 2004Q2

REPORT INFORMATION
  Report Type: 
  Country: None (occurrence: None)
  Receive Date: 20040407
  Receipt Date: 20040407
  Transmission Date: 20050107
  Serious: Yes (Hospitalization)
  Sender: FDA-Public Use
  Company Number: None

PATIENT
  Sex: Female

DRUGS (2)
  1. CARBAMAZEPINE [Suspect]
     Indication: CONVULSION
     Dosage: 200 MG PO QID
     Route: 048
  2. PRIMIDONE [Concomitant]

REACTIONS (6)
  - DIPLOPIA [None]
  - DRUG LEVEL ABOVE THERAPEUTIC [None]
  - FALL [None]
  - FEELING ABNORMAL [None]
  - HEAD INJURY [None]
  - VISION BLURRED [None]
